FAERS Safety Report 13520906 (Version 2)
Quarter: 2017Q2

REPORT INFORMATION
  Report Type: Spontaneous
  Country: US (occurrence: US)
  Receive Date: 20170508
  Receipt Date: 20170627
  Transmission Date: 20170830
  Serious: Yes (Hospitalization, Other)
  Sender: FDA-Public Use
  Company Number: US-CLOVIS ONCOLOGY-CLO-2017-000256

PATIENT
  Sex: Female

DRUGS (1)
  1. RUBRACA [Suspect]
     Active Substance: RUCAPARIB CAMSYLATE
     Indication: OVARIAN CANCER
     Dosage: 600 MG, BID
     Route: 048

REACTIONS (10)
  - Constipation [Recovered/Resolved]
  - Ovarian cancer recurrent [Unknown]
  - Diarrhoea [Recovered/Resolved]
  - Stoma site haemorrhage [Unknown]
  - Platelet count decreased [Unknown]
  - Abdominal pain upper [Not Recovered/Not Resolved]
  - Malaise [Unknown]
  - Headache [Not Recovered/Not Resolved]
  - Back pain [Not Recovered/Not Resolved]
  - Fatigue [Unknown]
